FAERS Safety Report 19125981 (Version 1)
Quarter: 2021Q2

REPORT INFORMATION
  Report Type: Spontaneous
  Country: IT (occurrence: IT)
  Receive Date: 20210413
  Receipt Date: 20210413
  Transmission Date: 20210717
  Serious: Yes (Other)
  Sender: FDA-Public Use
  Company Number: IT-ACCORD-221814

PATIENT
  Sex: Male

DRUGS (1)
  1. GEMCITABINE/GEMCITABINE HYDROCHLORIDE [Suspect]
     Active Substance: GEMCITABINE\GEMCITABINE HYDROCHLORIDE
     Indication: GLOMUS TUMOUR

REACTIONS (5)
  - Off label use [Unknown]
  - Asthenia [Unknown]
  - Systemic toxicity [Unknown]
  - Nausea [Unknown]
  - Pancytopenia [Unknown]
